FAERS Safety Report 21526018 (Version 1)
Quarter: 2022Q4

REPORT INFORMATION
  Report Type: Spontaneous
  Country: DK (occurrence: DK)
  Receive Date: 20221031
  Receipt Date: 20221031
  Transmission Date: 20230113
  Serious: Yes (Disabling)
  Sender: FDA-Public Use
  Company Number: None

PATIENT
  Age: 4 Decade
  Sex: Male

DRUGS (13)
  1. RITUXIMAB [Suspect]
     Active Substance: RITUXIMAB
     Indication: Castleman^s disease
     Dosage: DOSAGE: UNKNOWN STRENGTH: UNKNOWN ?GIVEN AS PART OF R-CHOEP PROTOCOL. 6.TREATMENT 27FEB2019
     Route: 065
     Dates: start: 20181115, end: 20190227
  2. RITUXIMAB [Suspect]
     Active Substance: RITUXIMAB
     Indication: Castleman^s disease
     Dosage: DOSAGE:UNKNOWN STRENGTH:UNKNOWN PART OF R-GEMCITABIN.START AFTER10SEP.2.TREAT.03OCT.STOP BEFORE15NOV
     Route: 065
     Dates: start: 201809, end: 2018
  3. RITUXIMAB [Suspect]
     Active Substance: RITUXIMAB
     Indication: Castleman^s disease
     Dosage: DOSAGE: UNKNOWN STRENGTH: UNKNOWN ?STOP DATE: BETWEEN JUN2018 - SEP2018
     Route: 065
     Dates: start: 20180618, end: 2018
  4. CYCLOPHOSPHAMIDE [Suspect]
     Active Substance: CYCLOPHOSPHAMIDE
     Indication: Castleman^s disease
     Dosage: DOSAGE:UNKNOWN STRENGTH:UNKNOWN?GIVEN AS PART OF R-CHOEP PROTOCOL. 6.TREATMENT 27FEB19
     Route: 065
     Dates: start: 20181115, end: 20190227
  5. DOXORUBICIN [Suspect]
     Active Substance: DOXORUBICIN
     Indication: Castleman^s disease
     Dosage: DOSAGE:UNKNOWN STRENGTH:UNKNOWN?GIVEN AS PART OF R-CHOEP PROTOCOL. 6.TREATMENT 27FEB19
     Route: 065
     Dates: start: 20181115, end: 20190227
  6. ETOPOSIDE [Suspect]
     Active Substance: ETOPOSIDE
     Indication: Castleman^s disease
     Dosage: DOSAGE: UNKNOWN STRENGTH: UNKNOWN.?START DATE: SPRING2019. GIVEN AS PART OF BEAM PROTOCOL
     Route: 065
     Dates: start: 2019
  7. ETOPOSIDE [Suspect]
     Active Substance: ETOPOSIDE
     Indication: Castleman^s disease
     Dosage: DOSAGE: UNKNOWN STRENGTH: UNKNOWN.?GIVEN AS PART OF R-CHOEP PROTOCOL. 6.TREATMENT 27FEB2019
     Route: 065
     Dates: start: 20181115, end: 20190227
  8. ONCOVIN [Suspect]
     Active Substance: VINCRISTINE SULFATE
     Indication: Castleman^s disease
     Dosage: DOSAGE: UNKNOWN STRENGTH: 1MG/ML?GIVEN AS PART OF R-CHOEP PROTOCOL. 6.TREATMENT 27FEB2019
     Route: 065
     Dates: start: 20181115, end: 20190227
  9. GEMCITABINE [Suspect]
     Active Substance: GEMCITABINE
     Indication: Castleman^s disease
     Dosage: DOSAGE:UNKNOWN STRENGTH:UNKNOWN ?START: AFTER 10SEP. 2.TREATMENT 03OKT. STOP BEFORE15NOV
     Route: 065
     Dates: start: 201809, end: 2018
  10. PREDNISOLONE [Suspect]
     Active Substance: PREDNISOLONE
     Indication: Castleman^s disease
     Dosage: DOSAGE: UNKNOWN STRENGTH: UNKNOWN ?GIVEN AS PART OF R-CHOEP PROTOCOL. 6. TREATMENT 27FEB2019
     Route: 065
     Dates: start: 20181115, end: 20190227
  11. CYTARABINE [Suspect]
     Active Substance: CYTARABINE
     Indication: Castleman^s disease
     Dosage: DOSAGE: UNKNOWN STRENGTH: UNKNOWN ?START DATE: SPRING2019. GIVEN AS PART OF BEAM PROTOCOL
     Route: 065
     Dates: start: 2019
  12. CARMUSTINE [Suspect]
     Active Substance: CARMUSTINE
     Indication: Castleman^s disease
     Dosage: DOSAGE: UNKNOWN STRENGTH: 100 MG?START DATE: SPRING2019. GIVEN AS PART OF BEAM PROTOCOL
     Route: 065
     Dates: start: 2019
  13. ALKERAN [Suspect]
     Active Substance: MELPHALAN
     Indication: Castleman^s disease
     Dosage: DOSAGE: UNKNOWN STRENGTH: UNKNOWN.   ?START DATE: SPRING2019. GIVEN AS PART OF BEAM PROTOCOL
     Route: 065
     Dates: start: 2019

REACTIONS (2)
  - Infertility [Not Recovered/Not Resolved]
  - Azoospermia [Not Recovered/Not Resolved]

NARRATIVE: CASE EVENT DATE: 20190318
